FAERS Safety Report 9843806 (Version 1)
Quarter: 2013Q4

REPORT INFORMATION
  Report Type: Spontaneous
  Country: US (occurrence: None)
  Receive Date: 20131223
  Receipt Date: 20131223
  Transmission Date: 20140711
  Serious: Yes (Other)
  Sender: FDA-Public Use
  Company Number: 1000050082

PATIENT
  Age: 67 Year
  Sex: Female

DRUGS (6)
  1. LINZESS [Suspect]
     Indication: CONSTIPATION
     Route: 048
     Dates: start: 201310, end: 201310
  2. DURAGESIC PATCH (FENTANYL) (TRANSDERMAL) (FENTANYL) [Concomitant]
  3. LYRICA (PREGABALIN) (PREGABALIN) [Concomitant]
  4. OMEPRAZOLE (OMEPRAZOLE) (OMEPRAZOLE) [Concomitant]
  5. VESICARE (SOLIFENACIN SUCCINATE) (SOLIFENACIN SUCCINATE) [Concomitant]
  6. DULCOLAX (BISACODYL) (BISACODYL) [Concomitant]

REACTIONS (1)
  - Drug ineffective [None]
